FAERS Safety Report 9210364 (Version 2)
Quarter: 2013Q2

REPORT INFORMATION
  Report Type: Spontaneous
  Country: US (occurrence: US)
  Receive Date: 20130404
  Receipt Date: 20130418
  Transmission Date: 20140414
  Serious: No
  Sender: FDA-Public Use
  Company Number: US-009507513-1304USA002015

PATIENT
  Sex: Female
  Weight: 79.37 kg

DRUGS (11)
  1. MIRALAX [Suspect]
     Indication: CONSTIPATION
     Dosage: UNK, BID
     Route: 048
     Dates: start: 20100914
  2. MIRALAX [Suspect]
     Indication: MEDICAL OBSERVATION
  3. DIGOXIN [Concomitant]
     Indication: SICK SINUS SYNDROME
     Dosage: 0.125 MG, QD
  4. FUROSEMIDE [Concomitant]
     Indication: SICK SINUS SYNDROME
     Dosage: 40 MG, UNKNOWN
  5. CARVEDILOL [Concomitant]
     Indication: SICK SINUS SYNDROME
     Dosage: 10.5 MG, UNKNOWN
  6. WARFARIN [Concomitant]
     Indication: SICK SINUS SYNDROME
     Dosage: 2.5 MG, 3 DAYS
  7. WARFARIN [Concomitant]
     Dosage: 5 MG, 4 DAYS
  8. LYRICA [Concomitant]
     Indication: NEUROPATHY PERIPHERAL
     Dosage: 200 MG, BID
  9. NORTRIPTYLINE [Concomitant]
     Indication: NEUROPATHY PERIPHERAL
     Dosage: 25 MG, QPM
  10. VITAMIN B50 [Concomitant]
     Indication: NEUROPATHY PERIPHERAL
     Dosage: 1000 MG, QD
  11. CYANOCOBALAMIN [Concomitant]
     Indication: NEUROPATHY PERIPHERAL
     Dosage: 1000 MG, QD

REACTIONS (2)
  - Inappropriate schedule of drug administration [Unknown]
  - Incorrect drug administration duration [Unknown]
